FAERS Safety Report 7843610-1 (Version None)
Quarter: 2011Q4

REPORT INFORMATION
  Report Type: 
  Country: None (occurrence: None)
  Receive Date: 20111025
  Receipt Date: 20111019
  Transmission Date: 20120403
  Serious: Yes (Other)
  Sender: FDA-Public Use
  Company Number: US-CELGENEUS-163-21880-11102368

PATIENT
  Sex: Male

DRUGS (6)
  1. REVLIMID [Suspect]
     Dosage: 5 MILLIGRAM
     Route: 048
     Dates: start: 20110401
  2. REVLIMID [Suspect]
     Indication: MULTIPLE MYELOMA
     Dosage: 15 MILLIGRAM
     Route: 048
     Dates: start: 20070401
  3. LASIX [Concomitant]
     Route: 065
  4. ANTIBIOTICS [Concomitant]
     Route: 065
  5. LESCOL [Concomitant]
     Route: 065
  6. ALLOPURINOL [Concomitant]
     Route: 065

REACTIONS (9)
  - FATIGUE [None]
  - NAUSEA [None]
  - PLATELET COUNT DECREASED [None]
  - HAEMOGLOBIN DECREASED [None]
  - NIGHT SWEATS [None]
  - JAW DISORDER [None]
  - ABDOMINAL PAIN [None]
  - RED BLOOD CELL COUNT DECREASED [None]
  - CHROMATURIA [None]
